FAERS Safety Report 5503175-6 (Version None)
Quarter: 2007Q4

REPORT INFORMATION
  Report Type: 
  Country: None (occurrence: None)
  Receive Date: 20071031
  Receipt Date: 20071019
  Transmission Date: 20080405
  Serious: Yes (Other)
  Sender: FDA-Public Use
  Company Number: GB-AMGEN-US234274

PATIENT
  Sex: Female

DRUGS (1)
  1. ENBREL [Suspect]
     Indication: DRUG USE FOR UNKNOWN INDICATION
     Dosage: 50 MG WEEKLY
     Route: 065
     Dates: start: 20070426, end: 20070705

REACTIONS (2)
  - HAEMATURIA [None]
  - RENAL CELL CARCINOMA STAGE UNSPECIFIED [None]
